FAERS Safety Report 6719021-9 (Version None)
Quarter: 2010Q2

REPORT INFORMATION
  Report Type: 
  Country: None (occurrence: None)
  Receive Date: 20100511
  Receipt Date: 20100507
  Transmission Date: 20101027
  Serious: Yes (Death)
  Sender: FDA-Public Use
  Company Number: JP-JNJFOC-20091206919

PATIENT
  Sex: Male
  Weight: 96 kg

DRUGS (4)
  1. ITRIZOLE [Suspect]
     Indication: ASPERGILLOMA
     Route: 041
  2. ITRIZOLE [Suspect]
     Route: 041
  3. MEROPENEM [Concomitant]
     Route: 042
  4. PARIET [Concomitant]
     Indication: PROPHYLAXIS
     Route: 048

REACTIONS (2)
  - ASPERGILLOMA [None]
  - BLOOD PRESSURE DECREASED [None]
